FAERS Safety Report 7703731-0 (Version None)
Quarter: 2011Q3

REPORT INFORMATION
  Report Type: 
  Country: None (occurrence: None)
  Receive Date: 20110823
  Receipt Date: 20110811
  Transmission Date: 20111222
  Serious: Yes (Hospitalization)
  Sender: FDA-Public Use
  Company Number: IL-SANOFI-AVENTIS-2011SA051814

PATIENT
  Age: 76 Year
  Sex: Male
  Weight: 99 kg

DRUGS (12)
  1. AMLODIPINE [Concomitant]
  2. ATORVASTATIN [Concomitant]
  3. VENTOLIN [Concomitant]
  4. DRONEDARONE HCL [Suspect]
     Indication: ATRIAL FIBRILLATION
     Route: 048
     Dates: start: 20110420, end: 20110515
  5. ASPIRIN [Concomitant]
  6. OMEPRAZOLE [Concomitant]
  7. BROTIZOLAM [Concomitant]
  8. ENOXAPARIN SODIUM [Concomitant]
     Dates: end: 20110422
  9. METOPROLOL [Concomitant]
     Dates: start: 20110423, end: 20110424
  10. WARFARIN SODIUM [Concomitant]
  11. METOPROLOL [Concomitant]
     Dates: start: 20110424
  12. RAMIPRIL [Concomitant]
     Dates: end: 20110423

REACTIONS (1)
  - CARDIAC FAILURE [None]
